FAERS Safety Report 16699254 (Version 1)
Quarter: 2019Q3

REPORT INFORMATION
  Report Type: Spontaneous
  Country: TW (occurrence: TW)
  Receive Date: 20190813
  Receipt Date: 20190813
  Transmission Date: 20191004
  Serious: Yes (Other)
  Sender: FDA-Public Use
  Company Number: PHHY2014TW185361

PATIENT
  Sex: Female

DRUGS (2)
  1. PREDNISOLONE. [Suspect]
     Active Substance: PREDNISOLONE
     Indication: PRODUCT USED FOR UNKNOWN INDICATION
     Dosage: 5 MG, UNK
     Route: 065
     Dates: start: 20140322, end: 20140324
  2. HYDROXYUREA. [Concomitant]
     Active Substance: HYDROXYUREA
     Indication: PRODUCT USED FOR UNKNOWN INDICATION
     Dosage: UNK
     Route: 065
     Dates: start: 20140319, end: 20140321

REACTIONS (9)
  - Fibrosis [Unknown]
  - Anaemia [Unknown]
  - Cachexia [Unknown]
  - Leukoerythroblastosis [Unknown]
  - Thrombocytopenia [Unknown]
  - Eastern Cooperative Oncology Group performance status [Unknown]
  - Myelofibrosis [Unknown]
  - Leukocytosis [Unknown]
  - Splenomegaly [Unknown]
